FAERS Safety Report 9335638 (Version 2)
Quarter: 2013Q2

REPORT INFORMATION
  Report Type: Spontaneous
  Country: US (occurrence: US)
  Receive Date: 20130605
  Receipt Date: 20130611
  Transmission Date: 20140414
  Serious: Yes (Death, Hospitalization)
  Sender: FDA-Public Use
  Company Number: US-ACTELION-A-NJ2013-83921

PATIENT
  Age: 67 Year
  Sex: Female

DRUGS (13)
  1. VELETRI [Suspect]
     Indication: PULMONARY ARTERIAL HYPERTENSION
     Dosage: 34 NG/KG, PER MIN
     Route: 041
     Dates: start: 20110831, end: 20130523
  2. COUMADIN [Concomitant]
     Dosage: UNK MG, UNK
  3. CADUET [Concomitant]
     Dosage: 10-80 MG, QD
  4. LOMOTIL [Concomitant]
     Dosage: 2.5-0.025 MG, QID
  5. TRICOR [Concomitant]
     Dosage: 145 MG, UNK
  6. DURAGESIC [Concomitant]
     Dosage: 75 MCG/HR PATCH
  7. NORCO [Concomitant]
     Dosage: 10-325 MG, Q6HRS
  8. SYNTHROID [Concomitant]
     Dosage: 175 MCG, QD
  9. LIDODERM [Concomitant]
     Dosage: 700 MG, UNK
  10. NORFLEX [Concomitant]
     Dosage: 100 MG, BID
  11. PHENERGAN [Concomitant]
     Dosage: 25 MG, Q6HRS
  12. AMBIEN [Concomitant]
     Dosage: 10 MG, QD
  13. ZANTAC [Concomitant]
     Dosage: 75 MG, UNK

REACTIONS (4)
  - Right ventricular failure [Fatal]
  - Hypoxia [Fatal]
  - Dyspnoea [Fatal]
  - Condition aggravated [Fatal]
